FAERS Safety Report 8829791 (Version 1)
Quarter: 2012Q4

REPORT INFORMATION
  Report Type: Spontaneous
  Country: JP (occurrence: None)
  Receive Date: 20121004
  Receipt Date: 20121004
  Transmission Date: 20130627
  Serious: Yes (Other)
  Sender: FDA-Public Use
  Company Number: CIP-2012-00351

PATIENT

DRUGS (2)
  1. CARBOPLATIN [Suspect]
     Indication: NON-SMALL CELL LUNG CANCER
     Dosage: AUC 5 over 60-90 minutes (day 1 every 3 weeks), Intravenous
     Route: 042
  2. GEMCITABINE (GEMCITABINE) [Suspect]
     Indication: NON-SMALL CELL LUNG CANCER
     Dosage: 30 minute infusion (800 mg/m2, days 1 and 8 every three weeks), Intravenous
     Route: 042

REACTIONS (1)
  - Haematotoxicity [None]
